FAERS Safety Report 13324258 (Version 1)
Quarter: 2017Q1

REPORT INFORMATION
  Report Type: Spontaneous
  Country: US (occurrence: US)
  Receive Date: 20170310
  Receipt Date: 20170310
  Transmission Date: 20170428
  Serious: Yes (Hospitalization)
  Sender: FDA-Public Use
  Company Number: US-FERRINGPH-2017FE00974

PATIENT

DRUGS (6)
  1. SALT [Concomitant]
     Active Substance: SODIUM CHLORIDE
  2. PYRIDOXINE [Concomitant]
     Active Substance: PYRIDOXINE
  3. WARFARIN [Concomitant]
     Active Substance: WARFARIN
  4. ATENOLOL. [Concomitant]
     Active Substance: ATENOLOL
  5. DDAVP [Suspect]
     Active Substance: DESMOPRESSIN ACETATE
     Indication: POLYURIA
     Dosage: 100 ?G, 3 TIMES DAILY
     Route: 048
  6. PROPAFENONE. [Concomitant]
     Active Substance: PROPAFENONE

REACTIONS (3)
  - Atrial fibrillation [Unknown]
  - Self-medication [Unknown]
  - Hyponatraemia [Recovered/Resolved]
